FAERS Safety Report 5318822-1 (Version None)
Quarter: 2007Q2

REPORT INFORMATION
  Report Type: 
  Country: None (occurrence: None)
  Receive Date: 20070508
  Receipt Date: 20070423
  Transmission Date: 20071010
  Serious: Yes (Hospitalization, Other)
  Sender: FDA-Public Use
  Company Number: US-ELI_LILLY_AND_COMPANY-US200605006342

PATIENT
  Age: 65 Year
  Sex: Female
  Weight: 60.317 kg

DRUGS (3)
  1. FORTEO [Suspect]
     Dosage: UNK, UNK
     Dates: start: 20050401
  2. EVISTA [Suspect]
     Dosage: 60 MG, DAILY (1/D)
     Dates: start: 19990323
  3. ZIAC [Concomitant]

REACTIONS (3)
  - COLONIC POLYP [None]
  - DIVERTICULUM INTESTINAL HAEMORRHAGIC [None]
  - PAIN [None]
